FAERS Safety Report 7787601-8 (Version None)
Quarter: 2011Q3

REPORT INFORMATION
  Report Type: 
  Country: None (occurrence: None)
  Receive Date: 20110929
  Receipt Date: 20110920
  Transmission Date: 20111222
  Serious: Yes (Other)
  Sender: FDA-Public Use
  Company Number: DE-BAXTER-2011BH029978

PATIENT

DRUGS (3)
  1. CARBOPLATIN [Suspect]
     Indication: GLIOBLASTOMA
     Route: 065
  2. ETOPOSIDE [Suspect]
     Indication: GLIOBLASTOMA
     Route: 065
  3. IFOSFAMIDE [Suspect]
     Indication: GLIOBLASTOMA
     Route: 065
     Dates: start: 20100801

REACTIONS (1)
  - PNEUMONIA [None]
